FAERS Safety Report 7854727-X (Version None)
Quarter: 2011Q4

REPORT INFORMATION
  Report Type: 
  Country: None (occurrence: None)
  Receive Date: 20111026
  Receipt Date: 20110729
  Transmission Date: 20120403
  Serious: No
  Sender: FDA-Public Use
  Company Number: US-MUTUAL PHARMACEUTICAL COMPANY, INC.-CLCY20110094

PATIENT
  Sex: Male
  Weight: 81.72 kg

DRUGS (3)
  1. COLCRYS [Suspect]
     Indication: GOUT
     Route: 048
     Dates: start: 20110715, end: 20110729
  2. PROTONIX [Concomitant]
     Indication: GASTROOESOPHAGEAL REFLUX DISEASE
     Route: 048
  3. LOPID [Concomitant]
     Indication: BLOOD CHOLESTEROL INCREASED
     Route: 048

REACTIONS (1)
  - RASH GENERALISED [None]
